FAERS Safety Report 8209833-7 (Version None)
Quarter: 2012Q1

REPORT INFORMATION
  Report Type: 
  Country: None (occurrence: None)
  Receive Date: 20120314
  Receipt Date: 20120312
  Transmission Date: 20120608
  Serious: Yes (Hospitalization)
  Sender: FDA-Public Use
  Company Number: PHHY2012BR003322

PATIENT
  Sex: Female

DRUGS (3)
  1. LEVOTHYROXINE SODIUM [Concomitant]
     Indication: HYPOTHYROIDISM
     Dosage: 100 UG, QD (ON FAST)
     Route: 048
  2. DIOVAN HCT [Suspect]
     Indication: HYPERTENSION
     Dosage: 1 DF (160/12.5 MG), DAILY
     Route: 048
  3. LIPANON [Concomitant]
     Indication: BLOOD TRIGLYCERIDES
     Dosage: 250 MG, DAILY
     Route: 048

REACTIONS (3)
  - INFECTION [None]
  - IMPAIRED HEALING [None]
  - TENDON OPERATION [None]
